FAERS Safety Report 9527776 (Version 1)
Quarter: 2013Q1

REPORT INFORMATION
  Report Type: Spontaneous
  Country: US (occurrence: None)
  Receive Date: 20130314
  Receipt Date: 20130314
  Transmission Date: 20140127
  Serious: No
  Sender: FDA-Public Use
  Company Number: 2012SP031305

PATIENT
  Age: 61 Year
  Sex: Male
  Weight: 83.4 kg

DRUGS (10)
  1. VICTRELIS [Suspect]
     Dosage: 2400MG, DAIL, ORAL
     Route: 048
     Dates: start: 20110805, end: 20120219
  2. REBETOL [Suspect]
     Indication: HEPATITIS C
     Dosage: UNK, ORAL
     Route: 048
     Dates: start: 20110805, end: 20120219
  3. PEGASYS [Suspect]
     Dosage: UNK, SUBCUTANEOUS
     Route: 058
     Dates: start: 20110805, end: 20120219
  4. BENICAR HCT (HYDROCHLOROTHIAZIDE, OLMESARTAN MEDOXOMIL) (TABLET) (HYDROCHLOROTHIAZIDE, OLMESARTAN MEDOXOMIL) [Concomitant]
  5. BYSTOLIC (NEBIVOLOL HYDROCHLORIDE) [Concomitant]
  6. LUNESTA (ESZOPICLONE) [Concomitant]
  7. NEXIUM (ESOMEPRAZOLE MAGNESIUM) CAPSULE [Concomitant]
  8. PROVENTIL (ALBUTEROL SULFATE) INHALATION POWDER [Concomitant]
  9. ZOLPIDEM TARTRATE (ZOLPIDEM TARTRATE) [Concomitant]
  10. VALACYCLOVIR HYDROCHLORIDE (VALACYCLOVIR HYDROCHLORIDE) [Concomitant]

REACTIONS (4)
  - Tri-iodothyronine increased [None]
  - Thyroxine increased [None]
  - Glomerular filtration rate decreased [None]
  - Hepatitis C [None]
